FAERS Safety Report 15900402 (Version 2)
Quarter: 2019Q1

REPORT INFORMATION
  Report Type: Spontaneous
  Country: SK (occurrence: SK)
  Receive Date: 20190201
  Receipt Date: 20190211
  Transmission Date: 20190417
  Serious: Yes (Hospitalization, Disabling, Other)
  Sender: FDA-Public Use
  Company Number: SK-JNJFOC-20190200055

PATIENT
  Age: 78 Year
  Sex: Male
  Weight: 80 kg

DRUGS (5)
  1. XARELTO [Suspect]
     Active Substance: RIVAROXABAN
     Indication: ATRIAL FIBRILLATION
     Route: 048
     Dates: end: 20190115
  2. LUCETAM [Concomitant]
     Route: 065
  3. PRESTARIUM [Concomitant]
     Active Substance: PERINDOPRIL
     Route: 065
  4. CAVINTON [Concomitant]
     Active Substance: VINPOCETINE
     Route: 065
  5. SIMVOR [Concomitant]
     Active Substance: SIMVASTATIN
     Route: 065

REACTIONS (8)
  - Haemorrhagic stroke [Recovered/Resolved with Sequelae]
  - Meningism [Unknown]
  - Thalamus haemorrhage [Unknown]
  - Dyspnoea [Unknown]
  - Intraventricular haemorrhage [Unknown]
  - Organic brain syndrome [Unknown]
  - Somnolence [Unknown]
  - Mobility decreased [Unknown]

NARRATIVE: CASE EVENT DATE: 20190115
